FAERS Safety Report 15999444 (Version 1)
Quarter: 2019Q1

REPORT INFORMATION
  Report Type: Spontaneous
  Country: US (occurrence: US)
  Receive Date: 20190222
  Receipt Date: 20190222
  Transmission Date: 20190418
  Serious: No
  Sender: FDA-Public Use
  Company Number: None

PATIENT
  Age: 7 Year
  Sex: Male
  Weight: 28.35 kg

DRUGS (1)
  1. MIRALAX [Suspect]
     Active Substance: POLYETHYLENE GLYCOL 3350
     Indication: CONSTIPATION
     Dosage: ?          QUANTITY:1 CAPFUL;?
     Route: 048
     Dates: start: 20190208, end: 20190222

REACTIONS (2)
  - Abnormal behaviour [None]
  - Disturbance in attention [None]

NARRATIVE: CASE EVENT DATE: 20190221
